FAERS Safety Report 22189226 (Version 2)
Quarter: 2023Q2

REPORT INFORMATION
  Report Type: Spontaneous
  Country: US (occurrence: US)
  Receive Date: 20230410
  Receipt Date: 20230515
  Transmission Date: 20230721
  Serious: Yes (Other)
  Sender: FDA-Public Use
  Company Number: US-SAGENT PHARMACEUTICALS-2023SAG000064

PATIENT
  Age: 0 Year
  Sex: Male

DRUGS (1)
  1. CAFFEINE CITRATE [Suspect]
     Active Substance: CAFFEINE CITRATE
     Indication: Infantile apnoea
     Dosage: 17.5 MILLIGRAM, Q24 HRS
     Route: 042
     Dates: start: 20230124, end: 20230125

REACTIONS (4)
  - Neonatal hypoxia [Recovered/Resolved]
  - Catheter site inflammation [Recovered/Resolved]
  - Incorrect route of product administration [Unknown]
  - Lethargy [Recovered/Resolved]

NARRATIVE: CASE EVENT DATE: 20230124
